FAERS Safety Report 9556917 (Version 2)
Quarter: 2013Q3

REPORT INFORMATION
  Report Type: Report from Study
  Country: US (occurrence: US)
  Receive Date: 20130926
  Receipt Date: 20130926
  Transmission Date: 20140515
  Serious: Yes (Hospitalization)
  Sender: FDA-Public Use
  Company Number: US-IPSEN BIOPHARMACEUTICALS, INC.-2011-2737

PATIENT
  Age: 4 Year
  Sex: Male
  Weight: 13 kg

DRUGS (7)
  1. INCRELEX [Suspect]
     Indication: PRIMARY INSULIN LIKE GROWTH FACTOR-1 DEFICIENCY
     Route: 058
     Dates: start: 20100914, end: 20101227
  2. INCRELEX [Suspect]
     Route: 058
     Dates: start: 201101
  3. INCRELEX [Suspect]
     Route: 058
     Dates: start: 201104
  4. INCRELEX [Suspect]
     Route: 058
     Dates: start: 20110621
  5. CHILDREN^S TYLENOL [Concomitant]
     Indication: PYREXIA
     Dosage: NOT REPORTED
     Route: 065
  6. CHILDREN^S IBUPROFEN [Concomitant]
     Indication: PYREXIA
     Dosage: NOT REPORTED
     Route: 065
  7. OTIC DROPS (ABX) [Concomitant]
     Indication: EAR INFECTION
     Dosage: NOT REPORTED
     Route: 001

REACTIONS (8)
  - Adenoidal hypertrophy [Recovered/Resolved]
  - Pharyngitis streptococcal [Recovering/Resolving]
  - Nasal turbinate hypertrophy [Recovered/Resolved]
  - Tonsillar hypertrophy [Recovered/Resolved]
  - Otitis media chronic [Recovered/Resolved]
  - Breath odour [Not Recovered/Not Resolved]
  - Rash [Recovered/Resolved]
  - Nasal oedema [Not Recovered/Not Resolved]
